FAERS Safety Report 7092959-1 (Version None)
Quarter: 2010Q4

REPORT INFORMATION
  Report Type: 
  Country: None (occurrence: None)
  Receive Date: 20101110
  Receipt Date: 20101026
  Transmission Date: 20110411
  Serious: Yes (Death)
  Sender: FDA-Public Use
  Company Number: US-SHIONOGI USA, INC-2010000064

PATIENT
  Age: 3 Month
  Sex: Female

DRUGS (1)
  1. ORAPRED ORAL SOLUTION [Suspect]
     Indication: HAEMANGIOMA
     Dosage: 2 MG/KG/DAY
     Route: 048

REACTIONS (2)
  - PNEUMOCYSTIS JIROVECI PNEUMONIA [None]
  - RESPIRATORY FAILURE [None]
